FAERS Safety Report 5510789-6 (Version None)
Quarter: 2007Q4

REPORT INFORMATION
  Report Type: 
  Country: None (occurrence: None)
  Receive Date: 20071107
  Receipt Date: 20071025
  Transmission Date: 20080405
  Serious: Yes (Other)
  Sender: FDA-Public Use
  Company Number: 2007332573

PATIENT
  Age: 3 Year
  Sex: Male

DRUGS (1)
  1. CHILDREN'S SUDAFED PE COLD + COUGH (DEXTROMETHORPHAN, PHENYLEPHRINE) [Suspect]
     Dosage: 5 ML, 4 DOSES, ORAL
     Route: 048
     Dates: start: 20070928, end: 20070930

REACTIONS (2)
  - CONVULSION [None]
  - FALL [None]
